FAERS Safety Report 22959239 (Version 6)
Quarter: 2025Q4

REPORT INFORMATION
  Report Type: Spontaneous
  Country: GB (occurrence: GB)
  Receive Date: 20230920
  Receipt Date: 20251222
  Transmission Date: 20260117
  Serious: Yes (Other)
  Sender: CIPLA
  Company Number: GB-AstraZeneca-2023A076602

PATIENT

DRUGS (54)
  1. ESOMEPRAZOLE [Suspect]
     Active Substance: ESOMEPRAZOLE
     Indication: Reflux laryngitis
     Dosage: 40 MILLIGRAM, AFTER EVERY MEAL
     Route: 065
  2. APIXABAN [Suspect]
     Active Substance: APIXABAN
     Indication: Cerebrovascular accident prophylaxis
     Dosage: 10 MILLIGRAM, QD (OFF LABEL DOSING FREQUENCY)
     Route: 065
     Dates: start: 20180207, end: 20180207
  3. APIXABAN [Suspect]
     Active Substance: APIXABAN
     Dosage: 5 MILLIGRAM, QD (OFF LABEL DOSING FREQUENCY)
     Route: 065
     Dates: start: 20180207, end: 20180207
  4. CETIRIZINE [Suspect]
     Active Substance: CETIRIZINE HYDROCHLORIDE
     Indication: Product used for unknown indication
     Dosage: 10 MILLIGRAM, QD (IN THE MORNING)
     Route: 048
  5. BISOPROLOL FUMARATE [Suspect]
     Active Substance: BISOPROLOL FUMARATE
     Indication: Cerebrovascular accident prophylaxis
     Dosage: 5 MILLIGRAM, QD (OFF LABEL USE)
     Route: 065
     Dates: start: 20180207, end: 20180207
  6. BISOPROLOL FUMARATE [Suspect]
     Active Substance: BISOPROLOL FUMARATE
     Dosage: 10 MILLIGRAM, QD (OFF LABEL USE)
     Route: 065
  7. CANDESARTAN CILEXETIL [Suspect]
     Active Substance: CANDESARTAN CILEXETIL
     Indication: Product used for unknown indication
     Dosage: 1 DOSAGE FORM (ONE TO BE TAKEN EACH DAY)
     Route: 065
     Dates: start: 20220222
  8. CANDESARTAN CILEXETIL [Suspect]
     Active Substance: CANDESARTAN CILEXETIL
     Dosage: 2 MILLIGRAM, QD (MORNING) (OFF LABLE USE) (TABLET)
     Route: 048
     Dates: start: 20220222
  9. CANDESARTAN CILEXETIL [Suspect]
     Active Substance: CANDESARTAN CILEXETIL
     Dosage: UNK UNK, QD (TABLET)
     Route: 048
     Dates: start: 20220222
  10. CANDESARTAN CILEXETIL [Suspect]
     Active Substance: CANDESARTAN CILEXETIL
     Dosage: 16 MILLIGRAM, QD (TABLET)
     Route: 065
     Dates: start: 20220401, end: 20230316
  11. ASTRAZENECA COVID-19 VACCINE [Suspect]
     Active Substance: AZD-1222
     Indication: COVID-19 immunisation
     Dosage: UNK
     Route: 030
     Dates: start: 20210208, end: 20210208
  12. ASTRAZENECA COVID-19 VACCINE [Suspect]
     Active Substance: AZD-1222
     Dosage: UNK (DOSE 1)
     Route: 030
     Dates: start: 20210312, end: 20210312
  13. ASTRAZENECA COVID-19 VACCINE [Suspect]
     Active Substance: AZD-1222
     Dosage: UNK
     Route: 030
     Dates: start: 20210312, end: 20210312
  14. ASTRAZENECA COVID-19 VACCINE [Suspect]
     Active Substance: AZD-1222
     Dosage: UNK (DOSE 1)
     Route: 030
     Dates: start: 20210507, end: 20210507
  15. ASTRAZENECA COVID-19 VACCINE [Suspect]
     Active Substance: AZD-1222
     Dosage: UNK
     Route: 030
     Dates: start: 20210517, end: 20210517
  16. ASTRAZENECA COVID-19 VACCINE [Suspect]
     Active Substance: AZD-1222
     Dosage: UNK (DOSE 2)
     Route: 030
     Dates: start: 20210605, end: 20210605
  17. ASTRAZENECA COVID-19 VACCINE [Suspect]
     Active Substance: AZD-1222
     Dosage: UNK
     Route: 030
     Dates: start: 20210622, end: 20210622
  18. ASTRAZENECA COVID-19 VACCINE [Suspect]
     Active Substance: AZD-1222
     Dosage: UNK
     Route: 030
     Dates: start: 20210625, end: 20210625
  19. ASTRAZENECA COVID-19 VACCINE [Suspect]
     Active Substance: AZD-1222
     Dosage: UNK (DOSE 2)
     Route: 030
     Dates: start: 20210625, end: 20210625
  20. ASTRAZENECA COVID-19 VACCINE [Suspect]
     Active Substance: AZD-1222
     Dosage: UNK
     Route: 030
     Dates: start: 20210703, end: 20210703
  21. ASTRAZENECA COVID-19 VACCINE [Suspect]
     Active Substance: AZD-1222
     Dosage: UNK (DOSE 4)
     Route: 030
     Dates: start: 20211021, end: 20211021
  22. ASTRAZENECA COVID-19 VACCINE [Suspect]
     Active Substance: AZD-1222
     Dosage: UNK (DOSE 3C)
     Route: 030
     Dates: start: 20211221, end: 20211221
  23. ASTRAZENECA COVID-19 VACCINE [Suspect]
     Active Substance: AZD-1222
     Dosage: UNK (DOSE 4)
     Route: 030
     Dates: start: 20221214
  24. ASTRAZENECA COVID-19 VACCINE [Suspect]
     Active Substance: AZD-1222
     Dosage: UNK
     Route: 030
     Dates: start: 20221214
  25. DAPAGLIFLOZIN [Suspect]
     Active Substance: DAPAGLIFLOZIN
     Indication: Ill-defined disorder
     Dosage: 10 MILLIGRAM, QD
     Route: 048
     Dates: start: 20230217
  26. DIGOXIN [Suspect]
     Active Substance: DIGOXIN
     Indication: Cerebrovascular accident prophylaxis
     Dosage: 62.5 MICROGRAM, QD (MORNING)
     Route: 065
  27. DIGOXIN [Suspect]
     Active Substance: DIGOXIN
     Dosage: 63 MILLIGRAM, QD
     Route: 065
  28. FELODIPINE [Suspect]
     Active Substance: FELODIPINE
     Indication: Blood pressure abnormal
     Dosage: 2.5 MILLIGRAM, QD
     Route: 065
     Dates: start: 20230106
  29. HYDROCHLOROTHIAZIDE [Suspect]
     Active Substance: HYDROCHLOROTHIAZIDE
     Indication: Product used for unknown indication
     Dosage: 2 MILLIGRAM, DAILY
     Route: 048
  30. IMDUR [Suspect]
     Active Substance: ISOSORBIDE MONONITRATE
     Indication: Product used for unknown indication
     Dosage: 50 MILLIGRAM, QD (IN THE MORNING)
     Route: 048
  31. ISOSORBIDE DINITRATE [Suspect]
     Active Substance: ISOSORBIDE DINITRATE
     Indication: Product used for unknown indication
     Dosage: 50 MILLIGRAM
     Route: 048
  32. ISOSORBIDE MONONITRATE [Suspect]
     Active Substance: ISOSORBIDE MONONITRATE
     Indication: Product used for unknown indication
     Dosage: 50 MILLIGRAM, QD
     Route: 048
  33. LANSOPRAZOLE [Suspect]
     Active Substance: LANSOPRAZOLE
     Indication: Atrial fibrillation
     Dosage: 5 MILLIGRAM, QD
     Route: 065
     Dates: start: 20180207, end: 20180207
  34. LANSOPRAZOLE [Suspect]
     Active Substance: LANSOPRAZOLE
     Dosage: 30 MILLIGRAM, QD
     Route: 065
  35. LEVOTHYROXINE SODIUM [Suspect]
     Active Substance: LEVOTHYROXINE SODIUM
     Indication: Product used for unknown indication
     Dosage: 12 MICROGRAM, QD
     Route: 065
  36. LEVOTHYROXINE SODIUM [Suspect]
     Active Substance: LEVOTHYROXINE SODIUM
     Dosage: 125 MICROGRAM, QD
     Route: 065
  37. LEVOTHYROXINE SODIUM [Suspect]
     Active Substance: LEVOTHYROXINE SODIUM
     Dosage: 50 MICROGRAM, QD
     Route: 065
  38. LINAGLIPTIN [Suspect]
     Active Substance: LINAGLIPTIN
     Indication: Product used for unknown indication
     Dosage: 5 MILLIGRAM, QD (MORNING)
     Route: 065
  39. NAPROXEN [Suspect]
     Active Substance: NAPROXEN
     Indication: Product used for unknown indication
     Dosage: UNK
     Route: 065
  40. SIMVASTATIN [Suspect]
     Active Substance: SIMVASTATIN
     Indication: Product used for unknown indication
     Dosage: 40 MILLIGRAM, QD (NIGHT)
     Route: 048
  41. AMITRIPTYLINE HYDROCHLORIDE [Concomitant]
     Active Substance: AMITRIPTYLINE HYDROCHLORIDE
     Indication: Product used for unknown indication
     Dosage: UNK (1-2 NIGHTLY)
     Route: 065
     Dates: start: 20221123
  42. AMITRIPTYLINE HYDROCHLORIDE [Concomitant]
     Active Substance: AMITRIPTYLINE HYDROCHLORIDE
     Dosage: UNK, QD
     Route: 065
     Dates: start: 20221123
  43. BENDROFLUMETHIAZIDE [Concomitant]
     Active Substance: BENDROFLUMETHIAZIDE
     Indication: Product used for unknown indication
     Dosage: 1 DOSAGE FORM (TAKE ONE EACH MORNING)
     Route: 065
     Dates: start: 20221123
  44. BENDROFLUMETHIAZIDE [Concomitant]
     Active Substance: BENDROFLUMETHIAZIDE
     Dosage: UNK, QD
     Route: 065
     Dates: start: 20221123
  45. BISOPROLOL [Concomitant]
     Active Substance: BISOPROLOL
     Indication: Product used for unknown indication
     Dosage: UNK, QD
     Route: 065
     Dates: start: 20230301
  46. ESTRIOL [Concomitant]
     Active Substance: ESTRIOL
     Indication: Product used for unknown indication
     Dosage: UNK (APPLY APPLICATOR FULL EVERY NIGHT FOR 2 WEEKS)
     Route: 065
     Dates: start: 20221123
  47. ESTRIOL [Concomitant]
     Active Substance: ESTRIOL
     Dosage: UNK, QD
     Route: 065
     Dates: start: 20221123
  48. FOSFOMYCIN [Concomitant]
     Active Substance: FOSFOMYCIN
     Indication: Ill-defined disorder
     Dosage: UNK (TAKE ONE SACHET DISSOLVED IN A GLASS OF WATE)
     Route: 065
     Dates: start: 20230227, end: 20230228
  49. SIMVASTATIN [Concomitant]
     Active Substance: SIMVASTATIN
     Indication: Product used for unknown indication
     Dosage: 1 DOSAGE FORM (TAKE ONE AT NIGHT)
     Route: 065
     Dates: start: 20221123
  50. OMEPRAZOLE [Concomitant]
     Active Substance: OMEPRAZOLE
     Indication: Product used for unknown indication
     Dosage: 2 DOSAGE FORM (TAKE TWO DAILY)
     Route: 065
     Dates: start: 20221123
  51. LOSARTAN [Concomitant]
     Active Substance: LOSARTAN
     Indication: Ill-defined disorder
     Dosage: 1 DOSAGE FORM (ONE TO BE TAKEN DAILY)
     Route: 065
     Dates: start: 20210628
  52. LANSOPRAZOLE [Concomitant]
     Active Substance: LANSOPRAZOLE
     Indication: Ill-defined disorder
     Dosage: 1 DOSAGE FORM (TAKE ONE DAILY)
     Route: 065
     Dates: start: 20210628
  53. LEVOTHYROXINE [Concomitant]
     Active Substance: LEVOTHYROXINE
     Indication: Ill-defined disorder
     Dosage: 1 DOSAGE FORM (ONE TO BE TAKEN DAILY)
     Route: 065
  54. LEVOTHYROXINE SODIUM [Concomitant]
     Active Substance: LEVOTHYROXINE SODIUM
     Indication: Ill-defined disorder
     Dosage: 1 DOSAGE FORM (ONE TO BE TAKEN DAILY)
     Route: 065
     Dates: start: 20210628

REACTIONS (66)
  - Intentional product use issue [Unknown]
  - Off label use [Recovered/Resolved with Sequelae]
  - Anxiety [Not Recovered/Not Resolved]
  - Amnesia [Not Recovered/Not Resolved]
  - Pericarditis [Not Recovered/Not Resolved]
  - Myocardial infarction [Recovered/Resolved with Sequelae]
  - Memory impairment [Recovering/Resolving]
  - Blood glucose increased [Unknown]
  - Anosmia [Recovered/Resolved]
  - Dehydration [Unknown]
  - COVID-19 [Recovered/Resolved with Sequelae]
  - Diplopia [Not Recovered/Not Resolved]
  - Cardiospasm [Not Recovered/Not Resolved]
  - Lip swelling [Recovering/Resolving]
  - Carotid artery occlusion [Recovered/Resolved with Sequelae]
  - Dry skin [Not Recovered/Not Resolved]
  - Transient ischaemic attack [Recovered/Resolved]
  - Intentional product misuse [Unknown]
  - Palmoplantar keratoderma [Not Recovered/Not Resolved]
  - Feeling abnormal [Unknown]
  - Immunisation [Recovered/Resolved]
  - Facial pain [Recovered/Resolved]
  - Cognitive disorder [Recovered/Resolved]
  - Muscle twitching [Unknown]
  - Vasculitis [Not Recovered/Not Resolved]
  - Disturbance in attention [Recovered/Resolved]
  - Blindness [Not Recovered/Not Resolved]
  - Pyrexia [Recovered/Resolved]
  - Pain of skin [Recovered/Resolved]
  - Palpitations [Unknown]
  - Subarachnoid haemorrhage [Recovered/Resolved with Sequelae]
  - Eczema [Unknown]
  - Abdominal discomfort [Unknown]
  - Eye pruritus [Recovered/Resolved]
  - Dyspnoea [Unknown]
  - Back pain [Unknown]
  - Migraine [Not Recovered/Not Resolved]
  - Ventricular tachycardia [Not Recovered/Not Resolved]
  - Chest pain [Unknown]
  - Heart rate increased [Unknown]
  - Sleep terror [Recovered/Resolved]
  - Tinnitus [Not Recovered/Not Resolved]
  - Atrial tachycardia [Not Recovered/Not Resolved]
  - Tachycardia [Recovering/Resolving]
  - Angioedema [Recovered/Resolved]
  - Pain [Recovered/Resolved]
  - Malaise [Unknown]
  - Hallucination [Recovered/Resolved]
  - Hyperhidrosis [Unknown]
  - Muscular weakness [Unknown]
  - Tension headache [Not Recovered/Not Resolved]
  - Visual impairment [Not Recovered/Not Resolved]
  - Pruritus genital [Recovered/Resolved]
  - Pruritus [Recovering/Resolving]
  - Arthralgia [Recovered/Resolved]
  - Abdominal pain upper [Not Recovered/Not Resolved]
  - Rash papular [Recovering/Resolving]
  - Alopecia [Recovered/Resolved with Sequelae]
  - Insomnia [Unknown]
  - Vomiting [Recovered/Resolved]
  - Dizziness [Recovered/Resolved]
  - Diarrhoea [Recovered/Resolved]
  - Peripheral swelling [Recovered/Resolved]
  - Fatigue [Unknown]
  - Headache [Not Recovered/Not Resolved]
  - Nausea [Not Recovered/Not Resolved]

NARRATIVE: CASE EVENT DATE: 20180207
